FAERS Safety Report 4766858-1 (Version None)
Quarter: 2005Q3

REPORT INFORMATION
  Report Type: 
  Country: None (occurrence: None)
  Receive Date: 20050909
  Receipt Date: 20050824
  Transmission Date: 20060218
  Serious: Yes (Hospitalization)
  Sender: FDA-Public Use
  Company Number: 2005-131363-NL

PATIENT
  Age: 30 Year
  Sex: Female

DRUGS (4)
  1. DESOGESTREL AND ETHINYL ESTRADIOL [Suspect]
     Indication: DYSMENORRHOEA
     Dosage: DF ORAL
     Route: 048
     Dates: start: 20050702, end: 20050812
  2. MONTELKUST SODIUM [Concomitant]
  3. DICLOFENAC SODIUM [Concomitant]
  4. FERROUS SULFATE [Concomitant]

REACTIONS (3)
  - ADENOMYOSIS [None]
  - CONDITION AGGRAVATED [None]
  - THERAPY NON-RESPONDER [None]
